FAERS Safety Report 9149780 (Version 1)
Quarter: 2013Q1

REPORT INFORMATION
  Report Type: Spontaneous
  Country: US (occurrence: US)
  Receive Date: 20130308
  Receipt Date: 20130308
  Transmission Date: 20140127
  Serious: Yes (Other)
  Sender: FDA-Public Use
  Company Number: US-BAYER-2013-026961

PATIENT
  Age: 27 Year
  Sex: Female

DRUGS (1)
  1. MIRENA [Suspect]
     Indication: CONTRACEPTION
     Dosage: 20 MCG/24HR, CONT
     Route: 015
     Dates: start: 20110513, end: 201205

REACTIONS (14)
  - Device dislocation [None]
  - High risk pregnancy [None]
  - Device deployment issue [None]
  - Complication of device removal [None]
  - Emotional distress [None]
  - Depression [None]
  - Drug ineffective [None]
  - Pain [None]
  - Discomfort [None]
  - Anxiety [None]
  - Panic attack [None]
  - General physical health deterioration [None]
  - Injury [None]
  - Pregnancy with contraceptive device [None]
